FAERS Safety Report 6703321-2 (Version None)
Quarter: 2010Q2

REPORT INFORMATION
  Report Type: 
  Country: None (occurrence: None)
  Receive Date: 20100430
  Receipt Date: 20100419
  Transmission Date: 20101027
  Serious: Yes (Other)
  Sender: FDA-Public Use
  Company Number: US-BAYER-201019908NA

PATIENT
  Age: 32 Year
  Sex: Female

DRUGS (1)
  1. MIRENA [Suspect]
     Indication: CONTRACEPTION
     Dosage: LAST TIME SHE FELT THE STRINGS WAS 5-6 MONTHS AFTER INSERTION
     Route: 015
     Dates: start: 20080801, end: 20100406

REACTIONS (1)
  - DEVICE DISLOCATION [None]
